FAERS Safety Report 8008771-2 (Version None)
Quarter: 2011Q4

REPORT INFORMATION
  Report Type: 
  Country: None (occurrence: None)
  Receive Date: 20111227
  Receipt Date: 20111219
  Transmission Date: 20120403
  Serious: Yes (Hospitalization, Other)
  Sender: FDA-Public Use
  Company Number: CHPA2011US018329

PATIENT
  Sex: Female

DRUGS (1)
  1. BENEFIBER W/ WHEAT DEXTRIN [Suspect]
     Indication: IRRITABLE BOWEL SYNDROME
     Dosage: 2 TSP, 2-3 TIMES A DAY
     Route: 048

REACTIONS (7)
  - MUSCLE SPASMS [None]
  - RETCHING [None]
  - ATRIAL FIBRILLATION [None]
  - URINARY TRACT INFECTION [None]
  - HEART RATE INCREASED [None]
  - DRUG INEFFECTIVE FOR UNAPPROVED INDICATION [None]
  - HYPOTHYROIDISM [None]
